FAERS Safety Report 6161126-8 (Version None)
Quarter: 2009Q2

REPORT INFORMATION
  Report Type: 
  Country: None (occurrence: None)
  Receive Date: 20090421
  Receipt Date: 20070718
  Transmission Date: 20091009
  Serious: Yes (Hospitalization)
  Sender: FDA-Public Use
  Company Number: US-ASTRAZENECA-2007UW12238

PATIENT
  Age: 16289 Day
  Sex: Female
  Weight: 109.8 kg

DRUGS (20)
  1. SEROQUEL [Suspect]
     Indication: BIPOLAR DISORDER
     Route: 048
     Dates: start: 20010501, end: 20050430
  2. SEROQUEL [Suspect]
     Dosage: 25-400 MG
     Route: 048
     Dates: start: 20010206
  3. TRAZODONE HCL [Concomitant]
  4. REMERON [Concomitant]
  5. LORAZEPAM [Concomitant]
  6. HUMALOG [Concomitant]
  7. AMBIEN [Concomitant]
  8. COZAAR [Concomitant]
  9. GEODON [Concomitant]
  10. LORTAB [Concomitant]
  11. KLONOPIN [Concomitant]
  12. METHADONE HCL [Concomitant]
  13. ATIVAN [Concomitant]
  14. NARDIL [Concomitant]
  15. OXYCONTIN [Concomitant]
  16. DICYCLOMINE [Concomitant]
  17. SYNTHROID [Concomitant]
  18. SKELAXIN [Concomitant]
  19. RESTORIL [Concomitant]
  20. LASIX [Concomitant]

REACTIONS (33)
  - ABDOMINAL PAIN [None]
  - ABDOMINAL PAIN UPPER [None]
  - ACUTE RESPIRATORY DISTRESS SYNDROME [None]
  - ANAEMIA POSTOPERATIVE [None]
  - BLADDER MASS [None]
  - CERUMEN IMPACTION [None]
  - CONTUSION [None]
  - DYSPHAGIA [None]
  - EXCORIATION [None]
  - FLANK PAIN [None]
  - GASTRITIS [None]
  - GROIN PAIN [None]
  - HYPERTENSION [None]
  - HYPOTHYROIDISM [None]
  - IRRITABLE BOWEL SYNDROME [None]
  - JOINT INJURY [None]
  - LEUKOCYTOSIS [None]
  - MUSCULOSKELETAL PAIN [None]
  - NECK PAIN [None]
  - NEUROLEPTIC MALIGNANT SYNDROME [None]
  - OEDEMA PERIPHERAL [None]
  - PANCREATIC CYST [None]
  - POST PROCEDURAL INFECTION [None]
  - POST-TRAUMATIC STRESS DISORDER [None]
  - PSYCHOTIC DISORDER [None]
  - PYREXIA [None]
  - RASH [None]
  - SOMATOFORM DISORDER [None]
  - SPINAL COMPRESSION FRACTURE [None]
  - THROMBOCYTOPENIA [None]
  - THROMBOPHLEBITIS SUPERFICIAL [None]
  - TYPE 2 DIABETES MELLITUS [None]
  - WOUND DEHISCENCE [None]
